FAERS Safety Report 15678077 (Version 2)
Quarter: 2019Q1

REPORT INFORMATION
  Report Type: Report from Study
  Country: None (occurrence: BR)
  Receive Date: 20181201
  Receipt Date: 20190222
  Transmission Date: 20190417
  Serious: Yes (Hospitalization, Other)
  Sender: FDA-Public Use
  Company Number: BR-ABBVIE-14K-020-1306728-00

PATIENT
  Sex: Male
  Weight: 52 kg

DRUGS (19)
  1. HUMIRA [Suspect]
     Active Substance: ADALIMUMAB
     Indication: ANKYLOSING SPONDYLITIS
     Route: 058
     Dates: start: 20040101
  2. HUMIRA [Suspect]
     Active Substance: ADALIMUMAB
     Route: 058
     Dates: start: 20040101
  3. AZULFIDINE [Concomitant]
     Active Substance: SULFASALAZINE
     Indication: PRODUCT USED FOR UNKNOWN INDICATION
     Route: 048
     Dates: start: 2008
  4. GLIBENECK [Concomitant]
     Indication: DIABETES MELLITUS
     Route: 048
  5. DIAZEPAM. [Concomitant]
     Active Substance: DIAZEPAM
     Indication: SLEEP DISORDER THERAPY
  6. HIDROFLUX [Concomitant]
     Indication: DIABETES MELLITUS
     Route: 048
  7. SIMVASTATIN. [Concomitant]
     Active Substance: SIMVASTATIN
     Indication: BLOOD CHOLESTEROL ABNORMAL
     Route: 048
     Dates: start: 2008
  8. CLEDEPLADEONIDA [Concomitant]
     Indication: BLOOD PRESSURE MEASUREMENT
     Dates: start: 2013
  9. HIDROFLUX [Concomitant]
     Indication: BLOOD PRESSURE ABNORMAL
  10. FUROSEMIDE. [Concomitant]
     Active Substance: FUROSEMIDE
     Indication: DYSURIA
     Route: 048
  11. AMLODIPINE [Concomitant]
     Active Substance: AMLODIPINE BESYLATE
     Indication: HYPERTENSION
     Route: 048
  12. ENALAMED [Concomitant]
     Indication: BLOOD PRESSURE ABNORMAL
     Route: 048
  13. OMEPRAZOLE. [Concomitant]
     Active Substance: OMEPRAZOLE
     Indication: PROPHYLAXIS
     Route: 048
  14. OMEPRAZOLE. [Concomitant]
     Active Substance: OMEPRAZOLE
     Indication: GASTRIC DISORDER
  15. DIAZEPAM. [Concomitant]
     Active Substance: DIAZEPAM
     Indication: HEAD DISCOMFORT
     Route: 048
  16. HYDROCHLOROTHIAZIDE. [Concomitant]
     Active Substance: HYDROCHLOROTHIAZIDE
     Indication: PRODUCT USED FOR UNKNOWN INDICATION
     Route: 048
  17. LORATADINE. [Concomitant]
     Active Substance: LORATADINE
     Indication: PRURITUS
     Route: 048
     Dates: start: 201505
  18. AMITRIPTYLINE [Concomitant]
     Active Substance: AMITRIPTYLINE
     Indication: SLEEP DISORDER THERAPY
     Dosage: AT NIGHT
     Route: 048
  19. MEVILIP [Concomitant]
     Indication: SEDATIVE THERAPY
     Route: 048
     Dates: start: 2008

REACTIONS (15)
  - Renal failure [Recovered/Resolved]
  - Pneumonia [Recovered/Resolved]
  - Circumstance or information capable of leading to medication error [Unknown]
  - Blood creatinine decreased [Recovered/Resolved]
  - Injection site mass [Recovered/Resolved]
  - Blood cholesterol increased [Unknown]
  - Lung disorder [Recovered/Resolved]
  - Dry skin [Recovering/Resolving]
  - Anaemia [Recovered/Resolved]
  - Erythema [Recovered/Resolved]
  - Lung disorder [Not Recovered/Not Resolved]
  - Injection site mass [Recovered/Resolved]
  - Blood glucose decreased [Recovered/Resolved]
  - Renal disorder [Recovered/Resolved]
  - Pruritus [Recovering/Resolving]

NARRATIVE: CASE EVENT DATE: 2013
